FAERS Safety Report 5003012-2 (Version None)
Quarter: 2006Q2

REPORT INFORMATION
  Report Type: 
  Country: None (occurrence: None)
  Receive Date: 20060512
  Receipt Date: 20060502
  Transmission Date: 20061013
  Serious: Yes (Death, Life-Threatening, Hospitalization)
  Sender: FDA-Public Use
  Company Number: 200611180BCC

PATIENT
  Age: 69 Year
  Sex: Female

DRUGS (4)
  1. ALEVE [Suspect]
     Indication: PAIN
     Dosage: 440 MG, TOTAL DAILY, ORAL
     Route: 048
     Dates: start: 20060307
  2. PERCOCET [Concomitant]
  3. PORTABLE OXYGEN [Concomitant]
  4. COUMADIN [Concomitant]

REACTIONS (17)
  - ACUTE MYOCARDIAL INFARCTION [None]
  - ANAPHYLACTIC SHOCK [None]
  - ECCHYMOSIS [None]
  - EXCORIATION [None]
  - FALL [None]
  - HAEMORRHAGE [None]
  - IATROGENIC INJURY [None]
  - INTUBATION COMPLICATION [None]
  - PHARMACEUTICAL PRODUCT COMPLAINT [None]
  - RENAL FAILURE [None]
  - RESPIRATORY ARREST [None]
  - RESPIRATORY DISORDER [None]
  - RIB FRACTURE [None]
  - SWELLING [None]
  - SWOLLEN TONGUE [None]
  - TREATMENT NONCOMPLIANCE [None]
  - WOUND [None]
